FAERS Safety Report 4654819-2 (Version None)
Quarter: 2005Q2

REPORT INFORMATION
  Report Type: 
  Country: None (occurrence: None)
  Receive Date: 20050505
  Receipt Date: 20050505
  Transmission Date: 20051028
  Serious: Yes (Hospitalization)
  Sender: FDA-Public Use
  Company Number: None

PATIENT
  Age: 77 Year
  Sex: Male
  Weight: 90.7194 kg

DRUGS (8)
  1. TOPROL-XL [Suspect]
     Indication: ANGINA PECTORIS
     Dosage: 50 MG  Q12H   ORAL
     Route: 048
     Dates: start: 20050408, end: 20050429
  2. METHYLDOPA [Concomitant]
  3. POTASSIUM CHLORIDE [Concomitant]
  4. LISINOPRIL AND HYDROCHLOROTHIAZIDE [Concomitant]
  5. VERAPAMIL [Concomitant]
  6. LIPITOR [Concomitant]
  7. Z-PACK [Concomitant]
  8. CEFTRIAXONE [Concomitant]

REACTIONS (2)
  - RENAL FAILURE ACUTE [None]
  - STEVENS-JOHNSON SYNDROME [None]
